FAERS Safety Report 9322822 (Version 2)
Quarter: 2013Q3

REPORT INFORMATION
  Report Type: Spontaneous
  Country: JP (occurrence: JP)
  Receive Date: 20130602
  Receipt Date: 20130808
  Transmission Date: 20140515
  Serious: Yes (Other)
  Sender: FDA-Public Use
  Company Number: JP-ASTRAZENECA-2009AP03272

PATIENT
  Age: 67 Year
  Sex: Female

DRUGS (2)
  1. ARIMIDEX [Suspect]
     Indication: BREAST CANCER
     Route: 048
     Dates: start: 20081220
  2. FOSAMAC [Concomitant]
     Route: 048

REACTIONS (6)
  - Oculomucocutaneous syndrome [Not Recovered/Not Resolved]
  - Haemorrhage [Unknown]
  - Epistaxis [Recovered/Resolved]
  - Injury [Unknown]
  - Eye haemorrhage [Not Recovered/Not Resolved]
  - Skin erosion [Unknown]
